FAERS Safety Report 21918770 (Version 1)
Quarter: 2023Q1

REPORT INFORMATION
  Report Type: Spontaneous
  Country: US (occurrence: None)
  Receive Date: 20230126
  Receipt Date: 20230126
  Transmission Date: 20230418
  Serious: No
  Sender: FDA-Public Use
  Company Number: None

PATIENT
  Sex: Female

DRUGS (1)
  1. FINGOLIMOD [Suspect]
     Active Substance: FINGOLIMOD
     Indication: Multiple sclerosis
     Dosage: 0.5 MG EVERY DAY PO?
     Route: 048
     Dates: start: 202301

REACTIONS (3)
  - Multiple sclerosis [None]
  - Drug ineffective [None]
  - Visual impairment [None]
